FAERS Safety Report 6426664-9 (Version None)
Quarter: 2009Q4

REPORT INFORMATION
  Report Type: 
  Country: None (occurrence: None)
  Receive Date: 20091030
  Receipt Date: 20091019
  Transmission Date: 20100525
  Serious: Yes (Other)
  Sender: FDA-Public Use
  Company Number: 2009AP003988

PATIENT
  Age: 54 Year
  Sex: Male

DRUGS (4)
  1. AMLODIPINE BESYLATE [Suspect]
     Indication: HYPERTENSION
     Dosage: 5 MG; TAB; PO
     Route: 048
     Dates: start: 20090604
  2. AMLODIPINE MESILATE (AMLODIPINE MESILATE) [Concomitant]
  3. CILAZAPRIL (CILAZAPRIL) [Concomitant]
  4. HYDROCHLOROTHIAZIDE [Concomitant]

REACTIONS (13)
  - APTYALISM [None]
  - BLOOD PRESSURE SYSTOLIC INCREASED [None]
  - DIZZINESS [None]
  - DRUG INEFFECTIVE [None]
  - DRY MOUTH [None]
  - DYSGEUSIA [None]
  - HEADACHE [None]
  - HOT FLUSH [None]
  - HYPERHIDROSIS [None]
  - HYPOAESTHESIA [None]
  - MOUTH ULCERATION [None]
  - OEDEMA PERIPHERAL [None]
  - RASH PRURITIC [None]
